FAERS Safety Report 18652302 (Version 1)
Quarter: 2020Q4

REPORT INFORMATION
  Report Type: Spontaneous
  Country: CA (occurrence: CA)
  Receive Date: 20201223
  Receipt Date: 20201223
  Transmission Date: 20210114
  Serious: Yes (Life-Threatening, Other)
  Sender: FDA-Public Use
  Company Number: CA-SA-2020SA365334

PATIENT

DRUGS (62)
  1. BUSULFAN. [Suspect]
     Active Substance: BUSULFAN
     Dosage: 24 MG
     Route: 042
  2. CYCLOSPORINE. [Concomitant]
     Active Substance: CYCLOSPORINE
  3. DIMENHYDRINATE. [Concomitant]
     Active Substance: DIMENHYDRINATE
  4. DIPHENHYDRAMINE. [Concomitant]
     Active Substance: DIPHENHYDRAMINE
  5. FLUCONAZOLE. [Concomitant]
     Active Substance: FLUCONAZOLE
  6. LORAZEPAM. [Concomitant]
     Active Substance: LORAZEPAM
  7. MAGNESIUM [Concomitant]
     Active Substance: MAGNESIUM
  8. PENTAMIDINE ISETHIONATE. [Concomitant]
     Active Substance: PENTAMIDINE ISETHIONATE
  9. SULFAMETHOXAZOLE AND TRIMETHOPRIM [Concomitant]
     Active Substance: SULFAMETHOXAZOLE\TRIMETHOPRIM
  10. CYCLOPHOSPHAMIDE. [Suspect]
     Active Substance: CYCLOPHOSPHAMIDE
     Dosage: 120 MG
  11. ALTEPLASE. [Concomitant]
     Active Substance: ALTEPLASE
  12. CHLORHEXIDINE [Concomitant]
     Active Substance: CHLORHEXIDINE
  13. MUPIROCIN. [Concomitant]
     Active Substance: MUPIROCIN
     Route: 061
  14. MYCOPHENOLIC ACID. [Concomitant]
     Active Substance: MYCOPHENOLIC ACID
  15. ZINC. [Concomitant]
     Active Substance: ZINC
  16. ALEMTUZUMAB [Suspect]
     Active Substance: ALEMTUZUMAB
     Indication: BONE MARROW TRANSPLANT
     Dosage: 2.3 MG
     Route: 042
  17. CALCIUM [Concomitant]
     Active Substance: CALCIUM
  18. CETIRIZINE [Concomitant]
     Active Substance: CETIRIZINE HYDROCHLORIDE
  19. CICLESONIDE [Concomitant]
     Active Substance: CICLESONIDE
  20. CLOTRIMAZOLE. [Concomitant]
     Active Substance: CLOTRIMAZOLE
  21. LEVETIRACETAM. [Concomitant]
     Active Substance: LEVETIRACETAM
  22. VANCOMYCIN [Concomitant]
     Active Substance: VANCOMYCIN
  23. ACETAMINOPHEN. [Concomitant]
     Active Substance: ACETAMINOPHEN
  24. ACYCLOVIR [ACICLOVIR] [Concomitant]
     Active Substance: ACYCLOVIR
  25. AMLODIPINE [Concomitant]
     Active Substance: AMLODIPINE BESYLATE
  26. FAMCICLOVIR. [Concomitant]
     Active Substance: FAMCICLOVIR
  27. HEPARIN CALCIUM [Concomitant]
     Active Substance: HEPARIN CALCIUM
  28. CYCLOPHOSPHAMIDE. [Suspect]
     Active Substance: CYCLOPHOSPHAMIDE
     Indication: BONE MARROW TRANSPLANT
     Dosage: 156 MG
  29. DESONIDE. [Concomitant]
     Active Substance: DESONIDE
  30. EPINEPHRINE. [Concomitant]
     Active Substance: EPINEPHRINE
  31. KETAMINE [Concomitant]
     Active Substance: KETAMINE
  32. MELATONIN [Concomitant]
     Active Substance: MELATONIN
  33. NIFEDIPINE. [Concomitant]
     Active Substance: NIFEDIPINE
  34. PIPERACILLIN AND TAZOBACTAM [Concomitant]
     Active Substance: PIPERACILLIN SODIUM\TAZOBACTAM SODIUM
  35. RANITIDINE. [Concomitant]
     Active Substance: RANITIDINE
  36. SALICYLIC ACID. [Concomitant]
     Active Substance: SALICYLIC ACID
  37. FLUDARABINE PHOSPHATE. [Suspect]
     Active Substance: FLUDARABINE PHOSPHATE
     Dosage: 16 MG
     Route: 042
  38. BETAMETHASONE. [Concomitant]
     Active Substance: BETAMETHASONE
     Route: 061
  39. LANSOPRAZOLE. [Concomitant]
     Active Substance: LANSOPRAZOLE
  40. METHYLPREDNISOLONE. [Concomitant]
     Active Substance: METHYLPREDNISOLONE
  41. METOCLOPRAMIDE. [Concomitant]
     Active Substance: METOCLOPRAMIDE
  42. PANCRELIPASE. [Concomitant]
     Active Substance: PANCRELIPASE
  43. TOBRAMYCIN. [Concomitant]
     Active Substance: TOBRAMYCIN
  44. CLONIDINE. [Concomitant]
     Active Substance: CLONIDINE
  45. FAMOTIDINE. [Concomitant]
     Active Substance: FAMOTIDINE
  46. FUROSEMIDE. [Concomitant]
     Active Substance: FUROSEMIDE
  47. HYDROCORTISONE. [Concomitant]
     Active Substance: HYDROCORTISONE
  48. TACROLIMUS. [Concomitant]
     Active Substance: TACROLIMUS
  49. URSODIOL. [Concomitant]
     Active Substance: URSODIOL
  50. FLUDARABINE PHOSPHATE. [Suspect]
     Active Substance: FLUDARABINE PHOSPHATE
     Indication: BONE MARROW TRANSPLANT
     Dosage: 16 MG
     Route: 042
  51. BUSULFAN. [Suspect]
     Active Substance: BUSULFAN
     Indication: BONE MARROW TRANSPLANT
     Dosage: 50 MG
     Route: 042
  52. AMPHOTERICIN B. [Concomitant]
     Active Substance: AMPHOTERICIN B
  53. ATROPINE. [Concomitant]
     Active Substance: ATROPINE
  54. CEPHALEXIN [CEFALEXIN] [Concomitant]
     Active Substance: CEPHALEXIN
  55. CHOLECALCIFEROL [Concomitant]
     Active Substance: CHOLECALCIFEROL
  56. FILGRASTIM [Concomitant]
     Active Substance: FILGRASTIM
  57. FOLIC ACID. [Concomitant]
     Active Substance: FOLIC ACID
  58. MORPHINE [Concomitant]
     Active Substance: MORPHINE
  59. NALOXONE [Concomitant]
     Active Substance: NALOXONE
     Route: 030
  60. ONDANSETRON [Concomitant]
     Active Substance: ONDANSETRON
  61. RABBIT ANTI HUMAN THYMOCYTE IMMUNOGLOBULIN [Concomitant]
     Active Substance: LAPINE T-LYMPHOCYTE IMMUNE GLOBULIN
  62. SALBUTAMOL [Concomitant]
     Active Substance: ALBUTEROL

REACTIONS (1)
  - Aplastic anaemia [Unknown]
